FAERS Safety Report 24589706 (Version 2)
Quarter: 2024Q4

REPORT INFORMATION
  Report Type: Spontaneous
  Country: US (occurrence: US)
  Receive Date: 20241107
  Receipt Date: 20241206
  Transmission Date: 20250115
  Serious: No
  Sender: ABBVIE
  Company Number: US-ABBVIE-5985461

PATIENT
  Sex: Female

DRUGS (1)
  1. RINVOQ [Suspect]
     Active Substance: UPADACITINIB
     Indication: Colitis ulcerative
     Route: 048
     Dates: start: 20241025

REACTIONS (4)
  - Rhinalgia [Unknown]
  - Sinusitis [Recovered/Resolved]
  - Facial pain [Unknown]
  - Headache [Unknown]

NARRATIVE: CASE EVENT DATE: 20240101
